FAERS Safety Report 4560014-8 (Version None)
Quarter: 2005Q1

REPORT INFORMATION
  Report Type: 
  Country: None (occurrence: None)
  Receive Date: 20050124
  Receipt Date: 20050105
  Transmission Date: 20050727
  Serious: Yes (Death)
  Sender: FDA-Public Use
  Company Number: 2005S1000054

PATIENT
  Age: 75 Year
  Sex: Female

DRUGS (2)
  1. CLOZAPINE [Suspect]
     Indication: SCHIZOPHRENIA
     Dosage: 150 MG QAM, AND 125 MG QHS, ORAL
     Route: 048
     Dates: start: 20040701, end: 20041201
  2. CLOZAPINE [Suspect]
     Indication: SCHIZOPHRENIA
     Dosage: 150 MG QAM AND 125 MG QHS ORAL
     Route: 048
     Dates: start: 20040701, end: 20041201

REACTIONS (2)
  - FALL [None]
  - HIP FRACTURE [None]
